FAERS Safety Report 23472738 (Version 1)
Quarter: 2024Q1

REPORT INFORMATION
  Report Type: Report from Study
  Country: US (occurrence: US)
  Receive Date: 20240202
  Receipt Date: 20240202
  Transmission Date: 20240410
  Serious: Yes (Hospitalization)
  Sender: FDA-Public Use
  Company Number: US-ABBVIE-5620187

PATIENT
  Age: 54 Year
  Sex: Male

DRUGS (2)
  1. HUMIRA [Suspect]
     Active Substance: ADALIMUMAB
     Indication: Product used for unknown indication
     Route: 058
     Dates: start: 20231030
  2. HUMIRA [Suspect]
     Active Substance: ADALIMUMAB
     Route: 058
     Dates: start: 20230601

REACTIONS (3)
  - Colitis ulcerative [Unknown]
  - Drug ineffective [Not Recovered/Not Resolved]
  - Drug resistance [Unknown]

NARRATIVE: CASE EVENT DATE: 20231201
